FAERS Safety Report 9163512 (Version 5)
Quarter: 2013Q2

REPORT INFORMATION
  Report Type: Spontaneous
  Country: US (occurrence: US)
  Receive Date: 20130314
  Receipt Date: 20130510
  Transmission Date: 20140414
  Serious: No
  Sender: FDA-Public Use
  Company Number: US-PFIZER INC-2013081212

PATIENT
  Age: 65 Year
  Sex: Female
  Weight: 58.96 kg

DRUGS (13)
  1. ADVIL [Suspect]
     Indication: ARTHRALGIA
     Dosage: UNK, TWO TIMES A DAY
     Route: 048
     Dates: start: 201211, end: 201211
  2. ALEVE [Suspect]
     Dosage: UNK
  3. ESTRADIOL [Concomitant]
     Dosage: 1.5 MG, ONCE A DAY
  4. ALPRAZOLAM [Concomitant]
     Dosage: 1 MG, THREE TIMES A DAY
  5. CYCLOBENZAPRINE [Concomitant]
     Dosage: 10 MG, THREE TIMES A DAY
  6. TIZANIDINE [Concomitant]
     Dosage: 4 MG, TWO TIMES A DAY
  7. MOBIC [Concomitant]
     Dosage: 15 MG, ONCE A DAY
  8. TRAZODONE [Concomitant]
     Dosage: 50 MG, ONCE A DAY
  9. METOPROLOL [Concomitant]
     Dosage: 25 MG, ONCE A DAY
  10. OXYCODONE HYDROCHLORIDE, PARACETAMOL [Concomitant]
     Dosage: UNK, FOUR TIMES A DAY
  11. FUROSEMIDE [Concomitant]
     Dosage: 20 MG, ONCE A DAY
  12. GABAPENTIN [Concomitant]
     Dosage: 800 MG, THREE TIMES A DAY
  13. ASPIRIN [Concomitant]
     Dosage: 81 MG, ONCE A DAY

REACTIONS (4)
  - Abdominal pain upper [Unknown]
  - Body height decreased [Unknown]
  - Gastric disorder [Unknown]
  - Product commingling [Unknown]
